FAERS Safety Report 5699754-6 (Version None)
Quarter: 2008Q2

REPORT INFORMATION
  Report Type: 
  Country: None (occurrence: None)
  Receive Date: 20080408
  Receipt Date: 20080408
  Transmission Date: 20081010
  Serious: Yes (Hospitalization, Other)
  Sender: FDA-Public Use
  Company Number: None

PATIENT
  Age: 53 Year
  Sex: Female
  Weight: 63.5036 kg

DRUGS (1)
  1. CHANTIX [Suspect]
     Indication: SMOKING CESSATION THERAPY
     Dosage: 1 PILL  2 TIMES A DAY  PO
     Route: 048
     Dates: start: 20080116, end: 20080227

REACTIONS (7)
  - AGGRESSION [None]
  - CEREBRAL INFARCTION [None]
  - FATIGUE [None]
  - FEELING ABNORMAL [None]
  - HYPOAESTHESIA [None]
  - POOR QUALITY SLEEP [None]
  - TRANSIENT ISCHAEMIC ATTACK [None]
